FAERS Safety Report 5247529-4 (Version None)
Quarter: 2007Q1

REPORT INFORMATION
  Report Type: 
  Country: None (occurrence: None)
  Receive Date: 20070227
  Receipt Date: 20070219
  Transmission Date: 20070707
  Serious: Yes (Death)
  Sender: FDA-Public Use
  Company Number: IT-ELI_LILLY_AND_COMPANY-EWC041141322

PATIENT
  Age: 77 Year
  Sex: Female
  Weight: 62 kg

DRUGS (3)
  1. FORTEO [Suspect]
     Indication: OSTEOPOROSIS
     Dosage: 20 UG, DAILY (1/D)
     Route: 058
     Dates: start: 20040614
  2. SINVACOR [Concomitant]
     Indication: HYPERCHOLESTEROLAEMIA
     Dosage: 1 UNK, UNK
     Route: 048
     Dates: start: 19990101
  3. FOSICOMBI [Concomitant]
     Indication: HYPERTENSION
     Dosage: 1 UNK, WEEKLY (1/W)
     Route: 048
     Dates: start: 19990101

REACTIONS (1)
  - SUDDEN DEATH [None]
